FAERS Safety Report 11829521 (Version 3)
Quarter: 2016Q1

REPORT INFORMATION
  Report Type: Spontaneous
  Country: US (occurrence: US)
  Receive Date: 20151211
  Receipt Date: 20160322
  Transmission Date: 20160525
  Serious: Yes (Disabling)
  Sender: FDA-Public Use
  Company Number: US-009507513-1512USA004706

PATIENT
  Age: 40 Year
  Sex: Female
  Weight: 68.27 kg

DRUGS (1)
  1. NEXPLANON [Suspect]
     Active Substance: ETONOGESTREL
     Indication: CONTRACEPTION
     Dosage: UNK
     Route: 059
     Dates: start: 20151019, end: 20151028

REACTIONS (3)
  - Mania [Recovered/Resolved]
  - Homicidal ideation [Recovered/Resolved]
  - Postpartum depression [Recovered/Resolved]

NARRATIVE: CASE EVENT DATE: 20151019
